FAERS Safety Report 23235908 (Version 2)
Quarter: 2023Q4

REPORT INFORMATION
  Report Type: Spontaneous
  Country: US (occurrence: US)
  Receive Date: 20231128
  Receipt Date: 20231219
  Transmission Date: 20240110
  Serious: No
  Sender: FDA-Public Use
  Company Number: US-PFIZER INC-PV202300124201

PATIENT
  Age: 72 Year
  Sex: Female
  Weight: 48.9 kg

DRUGS (1)
  1. BOSULIF [Suspect]
     Active Substance: BOSUTINIB MONOHYDRATE
     Dosage: 400 MG, DAILY (TAKE 4 TABLETS BY MOUTH DAILY)
     Route: 048

REACTIONS (1)
  - Restlessness [Unknown]
